FAERS Safety Report 9580829 (Version 1)
Quarter: 2013Q4

REPORT INFORMATION
  Report Type: Spontaneous
  Country: US (occurrence: None)
  Receive Date: 20131001
  Receipt Date: 20131001
  Transmission Date: 20140711
  Serious: No
  Sender: FDA-Public Use
  Company Number: None

PATIENT
  Sex: Female
  Weight: 56.25 kg

DRUGS (9)
  1. ETHYL ICOSAPENTATE [Suspect]
     Indication: BLOOD TRIGLYCERIDES INCREASED
     Route: 048
     Dates: start: 20130801, end: 20130823
  2. INSULIN [Concomitant]
  3. LOVASTATIN [Concomitant]
  4. LOSARTAN/HCTZ 100/25 [Concomitant]
  5. POT/CL MICRO [Concomitant]
  6. MEQ CR [Concomitant]
  7. GLIMEPIRIDE [Concomitant]
  8. ASPIRIN-BILLBERRY [Concomitant]
  9. BIZ [Concomitant]

REACTIONS (4)
  - Arthralgia [None]
  - Pain in extremity [None]
  - Myalgia [None]
  - Middle insomnia [None]
